FAERS Safety Report 9586228 (Version 2)
Quarter: 2013Q4

REPORT INFORMATION
  Report Type: Spontaneous
  Country: IT (occurrence: IT)
  Receive Date: 20131003
  Receipt Date: 20131007
  Transmission Date: 20140711
  Serious: Yes (Other)
  Sender: FDA-Public Use
  Company Number: IT-RANBAXY-2013RR-73559

PATIENT
  Age: 47 Year
  Sex: Male

DRUGS (1)
  1. AMOXICILLIN [Suspect]
     Indication: OROPHARYNGEAL PAIN
     Dosage: 2 G/DAY
     Route: 048
     Dates: start: 20130628, end: 20130702

REACTIONS (2)
  - Dermatitis bullous [Recovering/Resolving]
  - Rash generalised [Recovering/Resolving]
